FAERS Safety Report 4277515-2 (Version None)
Quarter: 2004Q1

REPORT INFORMATION
  Report Type: 
  Country: None (occurrence: None)
  Receive Date: 20040122
  Receipt Date: 20020619
  Transmission Date: 20041129
  Serious: Yes (Other)
  Sender: FDA-Public Use
  Company Number: GB-BRISTOL-MYERS SQUIBB COMPANY-11917002

PATIENT
  Age: 37 Year
  Sex: Male

DRUGS (6)
  1. PRAVASTATIN SODIUM [Suspect]
     Dosage: LAST DOSE PRIOR TO EVENT = 04-FEB-2002
     Route: 048
     Dates: start: 20011011
  2. GATIFLOXACIN [Suspect]
     Route: 048
     Dates: start: 20011026, end: 20020204
  3. ATENOLOL [Concomitant]
     Route: 048
     Dates: start: 20011008
  4. RAMIPRIL [Concomitant]
     Route: 048
     Dates: start: 20011019
  5. BENDROFLUAZIDE [Concomitant]
     Route: 048
     Dates: start: 20020201
  6. ASPIRIN [Concomitant]
     Route: 048
     Dates: start: 20011002

REACTIONS (2)
  - DIABETES MELLITUS [None]
  - DIABETES MELLITUS NON-INSULIN-DEPENDENT [None]
